FAERS Safety Report 6872790-X (Version None)
Quarter: 2010Q3

REPORT INFORMATION
  Report Type: 
  Country: None (occurrence: None)
  Receive Date: 20100723
  Receipt Date: 20100712
  Transmission Date: 20110219
  Serious: Yes (Hospitalization, Other)
  Sender: FDA-Public Use
  Company Number: PL-GENENTECH-304256

PATIENT
  Sex: Female
  Weight: 97 kg

DRUGS (6)
  1. MABTHERA [Suspect]
     Indication: DIFFUSE LARGE B-CELL LYMPHOMA
     Dosage: 750 UNK, Q14D
     Route: 042
     Dates: start: 20100303
  2. CYCLOPHOSPHAMIDE [Concomitant]
     Indication: DIFFUSE LARGE B-CELL LYMPHOMA
     Dosage: 1600 UNK, UNK
     Route: 042
     Dates: start: 20100303
  3. VINCRISTINE [Concomitant]
     Indication: DIFFUSE LARGE B-CELL LYMPHOMA
     Dosage: 2 UNK, UNK
     Route: 042
     Dates: start: 20100303
  4. DOXORUBICIN HCL [Concomitant]
     Indication: DIFFUSE LARGE B-CELL LYMPHOMA
     Dosage: 100 UNK, UNK
     Route: 042
     Dates: start: 20100303
  5. PREDNISONE [Concomitant]
     Indication: DIFFUSE LARGE B-CELL LYMPHOMA
     Dosage: UNK
  6. METFORMAX [Concomitant]
     Indication: TYPE 2 DIABETES MELLITUS
     Dosage: 500 UNK, BID
     Route: 048

REACTIONS (3)
  - DIABETES MELLITUS [None]
  - GRANULOCYTOPENIA [None]
  - LUNG INFILTRATION [None]
